FAERS Safety Report 4514821-8 (Version None)
Quarter: 2004Q4

REPORT INFORMATION
  Report Type: 
  Country: None (occurrence: None)
  Receive Date: 20041126
  Receipt Date: 20041110
  Transmission Date: 20050328
  Serious: Yes (Hospitalization)
  Sender: FDA-Public Use
  Company Number: 2004AP05727

PATIENT
  Age: 68 Year
  Sex: Male

DRUGS (4)
  1. NEXIUM HP [Suspect]
     Dosage: 20 MG BID PO
     Route: 048
     Dates: start: 20040708, end: 20040714
  2. AMOXICILLIN [Suspect]
     Dosage: 1000 MG BID PO
     Route: 048
     Dates: start: 20040708, end: 20040714
  3. CLARITHROMYCIN [Suspect]
     Dosage: 500 MG BID PO
     Route: 048
     Dates: start: 20040708, end: 20040714
  4. SOMAC [Concomitant]

REACTIONS (9)
  - ABDOMINAL PAIN [None]
  - DIARRHOEA [None]
  - DIZZINESS [None]
  - HEADACHE [None]
  - HYPERSENSITIVITY [None]
  - HYPERTENSION [None]
  - SWELLING FACE [None]
  - SWOLLEN TONGUE [None]
  - VOMITING [None]
